FAERS Safety Report 7496541-3 (Version None)
Quarter: 2011Q2

REPORT INFORMATION
  Report Type: 
  Country: None (occurrence: None)
  Receive Date: 20110523
  Receipt Date: 20110515
  Transmission Date: 20111010
  Serious: Yes (Other)
  Sender: FDA-Public Use
  Company Number: US-TEVA-281863USA

PATIENT
  Sex: Female
  Weight: 54.48 kg

DRUGS (4)
  1. PLAN B ONE-STEP [Suspect]
     Dosage: 1.5 MILLIGRAM;
     Route: 048
  2. PLAN B ONE-STEP [Suspect]
     Indication: POST COITAL CONTRACEPTION
     Dosage: 1.5 MILLIGRAM;
     Route: 048
  3. PLAN B ONE-STEP [Suspect]
     Dosage: 1.5 MILLIGRAM;
     Route: 048
     Dates: start: 20110513, end: 20110513
  4. PREDNISONE [Suspect]
     Indication: RHEUMATOID ARTHRITIS

REACTIONS (5)
  - HAEMATEMESIS [None]
  - FATIGUE [None]
  - DYSPEPSIA [None]
  - VOMITING [None]
  - OVULATION PAIN [None]
